FAERS Safety Report 8326885-4 (Version None)
Quarter: 2012Q2

REPORT INFORMATION
  Report Type: 
  Country: None (occurrence: None)
  Receive Date: 20120501
  Receipt Date: 20120416
  Transmission Date: 20120825
  Serious: Yes (Other)
  Sender: FDA-Public Use
  Company Number: US-WATSON-2012-06818

PATIENT
  Age: 12 Year
  Sex: Female
  Weight: 40 kg

DRUGS (3)
  1. RADIOACTIVE IODINE SOLUTION [Suspect]
     Indication: BASEDOW'S DISEASE
     Dosage: 11.1 MCI, MONTHLY
     Route: 065
  2. PREDNISONE TAB [Suspect]
     Indication: HYPERTHYROIDISM
     Dosage: 10 MG, DAILY
     Route: 048
  3. PREDNISONE TAB [Suspect]
     Indication: ASTHMA
     Dosage: 5 MG, DAILY

REACTIONS (2)
  - HYPOCALCAEMIA [None]
  - HYPOPARATHYROIDISM [None]
